FAERS Safety Report 9293570 (Version 2)
Quarter: 2013Q2

REPORT INFORMATION
  Report Type: Report from Study
  Country: US (occurrence: US)
  Receive Date: 20130516
  Receipt Date: 20130528
  Transmission Date: 20140414
  Serious: Yes (Other)
  Sender: FDA-Public Use
  Company Number: US-US-EMD SERONO, INC.-7201308

PATIENT
  Sex: Female

DRUGS (2)
  1. REBIF [Suspect]
     Indication: MULTIPLE SCLEROSIS
     Route: 058
     Dates: start: 20081029
  2. REBIF [Suspect]
     Route: 058

REACTIONS (6)
  - Eye disorder [Not Recovered/Not Resolved]
  - Anti-thyroid antibody [Unknown]
  - Injection site discolouration [Unknown]
  - Anxiety [Recovering/Resolving]
  - Depression [Recovering/Resolving]
  - Injection site pain [Unknown]
